FAERS Safety Report 12047254 (Version 2)
Quarter: 2017Q2

REPORT INFORMATION
  Report Type: Spontaneous
  Country: US (occurrence: US)
  Receive Date: 20160208
  Receipt Date: 20170531
  Transmission Date: 20170829
  Serious: No
  Sender: FDA-Public Use
  Company Number: US-APOTEX-2015AP012975

PATIENT
  Age: 70 Year
  Sex: Male

DRUGS (1)
  1. BUPROPION HYDROCHLORIDE. [Suspect]
     Active Substance: BUPROPION HYDROCHLORIDE
     Indication: SMOKING CESSATION THERAPY
     Dosage: 100 MG, SINGLE
     Route: 048
     Dates: start: 20150828, end: 20150828

REACTIONS (5)
  - Feeling abnormal [Not Recovered/Not Resolved]
  - Abnormal behaviour [Not Recovered/Not Resolved]
  - Mental disorder [Not Recovered/Not Resolved]
  - Amnesia [Not Recovered/Not Resolved]
  - Product substitution issue [Recovered/Resolved]

NARRATIVE: CASE EVENT DATE: 20150828
